FAERS Safety Report 18506690 (Version 1)
Quarter: 2020Q4

REPORT INFORMATION
  Report Type: Spontaneous
  Country: US (occurrence: US)
  Receive Date: 20201116
  Receipt Date: 20201116
  Transmission Date: 20210114
  Serious: Yes (Hospitalization, Other)
  Sender: FDA-Public Use
  Company Number: US-PFIZER INC-2020445498

PATIENT
  Age: 85 Year
  Sex: Male
  Weight: 90.72 kg

DRUGS (2)
  1. VYNDAMAX [Suspect]
     Active Substance: TAFAMIDIS
     Indication: CARDIAC AMYLOIDOSIS
     Dosage: 244 MG, DAILY (TAKING 4 CAPSULES A DAY BY MOUTH FOR A YEAR)
     Route: 048
  2. VYNDAMAX [Suspect]
     Active Substance: TAFAMIDIS
     Dosage: 61 MG, DAILY
     Route: 048
     Dates: start: 201810

REACTIONS (10)
  - Essential tremor [Not Recovered/Not Resolved]
  - Gait inability [Unknown]
  - Fluid retention [Unknown]
  - Prostatomegaly [Unknown]
  - Dyspnoea [Not Recovered/Not Resolved]
  - Condition aggravated [Not Recovered/Not Resolved]
  - Asthenia [Unknown]
  - Feeding disorder [Recovered/Resolved]
  - Overdose [Unknown]
  - Acute kidney injury [Unknown]

NARRATIVE: CASE EVENT DATE: 202006
